FAERS Safety Report 22398446 (Version 6)
Quarter: 2024Q2

REPORT INFORMATION
  Report Type: Spontaneous
  Country: ES (occurrence: ES)
  Receive Date: 20230602
  Receipt Date: 20240502
  Transmission Date: 20240715
  Serious: Yes (Death, Other)
  Sender: FDA-Public Use
  Company Number: ES-BAXTER-2023BAX021834

PATIENT
  Age: 71 Year
  Sex: Female

DRUGS (20)
  1. TEMODAL [Suspect]
     Active Substance: TEMOZOLOMIDE
     Indication: Diffuse large B-cell lymphoma
     Dosage: UNK UNK, CYCLIC (6TH LINE, 4 CYCLES)
     Route: 065
  2. IMBRUVICA [Suspect]
     Active Substance: IBRUTINIB
     Indication: Diffuse large B-cell lymphoma stage IV
     Dosage: UNK UNK, CYCLIC (6TH LINE, 4 CYCLES)
     Route: 048
  3. IMBRUVICA [Suspect]
     Active Substance: IBRUTINIB
     Dosage: UNK UNK, CYCLIC (6TH LINE, 4 CYCLES)
     Route: 048
  4. EPIRUBICIN [Suspect]
     Active Substance: EPIRUBICIN
     Indication: Diffuse large B-cell lymphoma
     Dosage: UNK UNK, CYCLIC (2ND LINE, 8 CYCLES AS PART OF EC REGIMEN)
     Route: 050
  5. METHOTREXATE SODIUM [Suspect]
     Active Substance: METHOTREXATE SODIUM
     Indication: Diffuse large B-cell lymphoma stage IV
     Dosage: UNK UNK, CYCLIC (5TH LINE AS PART OF R-MTX-ARA-C REGIME)
     Route: 065
  6. CYTARABINE [Suspect]
     Active Substance: CYTARABINE
     Indication: Diffuse large B-cell lymphoma stage IV
     Dosage: UNK UNK, CYCLIC (5TH LINE AS PART OF R-MTX-ARA-C REGIME)
     Route: 065
  7. TRUXIMA [Suspect]
     Active Substance: RITUXIMAB-ABBS
     Indication: Diffuse large B-cell lymphoma stage IV
     Dosage: CYCLIC (5TH LINE AS PART OF R-MTX-ARA-C REGIME)
     Route: 065
  8. TRUXIMA [Suspect]
     Active Substance: RITUXIMAB-ABBS
     Dosage: CYCLIC (3RD LINE, 1 CYCLE, BRIDGE THERAPY)
     Route: 065
  9. TRUXIMA [Suspect]
     Active Substance: RITUXIMAB-ABBS
     Dosage: 1ST LINE, 6 CYCLES AS PART OF RCHOP REGIMEN
     Route: 065
  10. DEXAMETHASONE [Suspect]
     Active Substance: DEXAMETHASONE
     Indication: Diffuse large B-cell lymphoma stage IV
     Dosage: UNK UNK, UNKNOWN FREQ.
     Route: 065
  11. DOXORUBICIN HYDROCHLORIDE [Suspect]
     Active Substance: DOXORUBICIN HYDROCHLORIDE
     Indication: Diffuse large B-cell lymphoma stage IV
     Dosage: UNK UNK, CYCLIC (1ST LINE, 6 CYCLES AS A PART OF RCHOP REGIMEN)/UNK, CYCLIC, 1ST LINE, 6 CYCLES AS A
     Route: 065
  12. GENOXAL [Suspect]
     Active Substance: CYCLOPHOSPHAMIDE
     Indication: Diffuse large B-cell lymphoma stage IV
     Dosage: UNK UNK, CYCLIC (2ND LINE, 8 CYCLES AS PART OF EC REGIMEN)
     Route: 065
  13. GENOXAL [Suspect]
     Active Substance: CYCLOPHOSPHAMIDE
     Dosage: UNK UNK, CYCLIC (1ST LINE, 6 CYCLES AS PART OF RCHOP REGIMEN)
     Route: 065
  14. PREDNISONE [Suspect]
     Active Substance: PREDNISONE
     Indication: Diffuse large B-cell lymphoma stage IV
     Dosage: UNK UNK, UNKNOWN FREQ.(1ST LINE, 6 CYCLES AS A PART OF RCHOP REGIME)
     Route: 065
  15. VINCRISTINE SULFATE [Suspect]
     Active Substance: VINCRISTINE SULFATE
     Indication: Diffuse large B-cell lymphoma
     Dosage: UNKNOWN FREQ.(1ST LINE, 6 CYCLES AS A PART OF RCHOP REGIME)
     Route: 065
  16. VINCRISTINE SULFATE [Suspect]
     Active Substance: VINCRISTINE SULFATE
     Dosage: UNKNOWN FREQ, 1ST LINE, 6 CYCLES AS A PART OF RCHOP REGIMEN
     Route: 065
  17. MOSUNETUZUMAB [Suspect]
     Active Substance: MOSUNETUZUMAB
     Indication: Diffuse large B-cell lymphoma
     Dosage: CYCLIC (2ND LINE, 8 CYCLES)
     Route: 050
  18. BENDAMUSTINE HYDROCHLORIDE [Suspect]
     Active Substance: BENDAMUSTINE HYDROCHLORIDE
     Indication: Diffuse large B-cell lymphoma
     Dosage: CYCLIC (3RD LINE, 1 CYCLE, BRIDGE THERAPY)
     Route: 042
  19. BENDAMUSTINE HYDROCHLORIDE [Suspect]
     Active Substance: BENDAMUSTINE HYDROCHLORIDE
     Dosage: UNK UNK, CYCLIC (3RD LINE, 1 CYCLE, BRIDGE THERAPY)
     Route: 042
  20. BENDAMUSTINE HYDROCHLORIDE [Suspect]
     Active Substance: BENDAMUSTINE HYDROCHLORIDE
     Dosage: CYCLIC 3RD LINE
     Route: 042

REACTIONS (13)
  - Death [Fatal]
  - Diffuse large B-cell lymphoma recurrent [Unknown]
  - Vasogenic cerebral oedema [Not Recovered/Not Resolved]
  - Malignant neoplasm progression [Recovered/Resolved]
  - Vasogenic cerebral oedema [Recovered/Resolved]
  - Neurological symptom [Unknown]
  - Malignant neoplasm progression [Recovered/Resolved]
  - Diffuse large B-cell lymphoma [Recovered/Resolved]
  - Diffuse large B-cell lymphoma [Recovered/Resolved]
  - Disease progression [Recovered/Resolved]
  - Disease progression [Not Recovered/Not Resolved]
  - Disorientation [Unknown]
  - Therapy partial responder [Unknown]
